FAERS Safety Report 21942636 (Version 1)
Quarter: 2023Q1

REPORT INFORMATION
  Report Type: Spontaneous
  Country: FR (occurrence: FR)
  Receive Date: 20230202
  Receipt Date: 20230202
  Transmission Date: 20230417
  Serious: Yes (Hospitalization)
  Sender: FDA-Public Use
  Company Number: FR-AFSSAPS-NC2023000025

PATIENT
  Age: 16 Year
  Sex: Female
  Weight: 67 kg

DRUGS (3)
  1. IBUPROFEN [Suspect]
     Active Substance: IBUPROFEN
     Indication: Pain
     Dosage: 800 MILLIGRAM, IN TOTAL
     Route: 048
     Dates: start: 20221130, end: 20221130
  2. KETOPROFEN [Suspect]
     Active Substance: KETOPROFEN
     Indication: Pain
     Dosage: 1200 MILLIGRAM, IN TOTAL
     Route: 048
     Dates: start: 20221130, end: 20221130
  3. DOLIPRANE [Suspect]
     Active Substance: ACETAMINOPHEN
     Indication: Pain
     Dosage: 2 GRAM, IN TOTAL
     Route: 048
     Dates: start: 20221130, end: 20221130

REACTIONS (5)
  - Diarrhoea [Recovering/Resolving]
  - Vomiting [Recovering/Resolving]
  - Paraesthesia [Recovering/Resolving]
  - Dizziness [Recovering/Resolving]
  - Headache [Recovering/Resolving]

NARRATIVE: CASE EVENT DATE: 20221201
